FAERS Safety Report 4714994-8 (Version None)
Quarter: 2005Q3

REPORT INFORMATION
  Report Type: 
  Country: None (occurrence: None)
  Receive Date: 20050715
  Receipt Date: 20050606
  Transmission Date: 20060218
  Serious: Yes (Hospitalization)
  Sender: FDA-Public Use
  Company Number: US-BOEHRINGER INGELHEIM PHARMACEUTICALS, INC.-2005-BP-09318BP

PATIENT
  Sex: Male

DRUGS (3)
  1. SPIRIVA [Suspect]
     Indication: CHRONIC OBSTRUCTIVE PULMONARY DISEASE
     Route: 055
     Dates: start: 20050501
  2. THEOPHYLLINE [Concomitant]
     Dosage: 100 - 300 MG / 24 HR. PRN
  3. ENTEX LA [Concomitant]
     Dosage: 1/2 BID

REACTIONS (1)
  - RESPIRATORY FAILURE [None]
